FAERS Safety Report 8160282-X (Version None)
Quarter: 2012Q1

REPORT INFORMATION
  Report Type: 
  Country: None (occurrence: None)
  Receive Date: 20120223
  Receipt Date: 20120223
  Transmission Date: 20120608
  Serious: Yes (Life-Threatening)
  Sender: FDA-Public Use
  Company Number: None

PATIENT
  Age: 88 Year
  Sex: Female
  Weight: 84.1 kg

DRUGS (1)
  1. DABIGITRAN [Suspect]
     Dosage: UNKNOWN
     Route: 048

REACTIONS (3)
  - INTERNATIONAL NORMALISED RATIO DECREASED [None]
  - ANAEMIA [None]
  - GASTROINTESTINAL HAEMORRHAGE [None]
